FAERS Safety Report 5475501-8 (Version None)
Quarter: 2007Q4

REPORT INFORMATION
  Report Type: 
  Country: None (occurrence: None)
  Receive Date: 20071001
  Receipt Date: 20070918
  Transmission Date: 20080405
  Serious: Yes (Hospitalization)
  Sender: FDA-Public Use
  Company Number: 17550

PATIENT
  Age: 30 Year
  Sex: Male

DRUGS (5)
  1. ETOPOSIDE [Suspect]
     Indication: TESTIS CANCER
     Dosage: 210 MG  IV
     Route: 042
     Dates: start: 20070723, end: 20070727
  2. TAXOL [Suspect]
  3. OXALIPLATIN [Suspect]
     Indication: TESTIS CANCER
     Dosage: 273 MG  IV
     Route: 042
     Dates: start: 20070801
  4. BLEOMYCIN [Suspect]
     Indication: TESTIS CANCER
     Dosage: 30 UNITS   IV
     Route: 042
     Dates: start: 20070723, end: 20070730
  5. CISPLATIN [Suspect]
     Indication: TESTIS CANCER
     Dosage: 42 MG IV
     Route: 042
     Dates: start: 20070723, end: 20070727

REACTIONS (8)
  - BEDRIDDEN [None]
  - GRANULOCYTOPENIA [None]
  - MUCOSAL INFLAMMATION [None]
  - ORAL INTAKE REDUCED [None]
  - ORAL PAIN [None]
  - PLATELET COUNT DECREASED [None]
  - STOMATITIS [None]
  - WHITE BLOOD CELL COUNT DECREASED [None]
